FAERS Safety Report 13936417 (Version 4)
Quarter: 2018Q1

REPORT INFORMATION
  Report Type: Spontaneous
  Country: US (occurrence: US)
  Receive Date: 20170905
  Receipt Date: 20180222
  Transmission Date: 20180508
  Serious: No
  Sender: FDA-Public Use
  Company Number: US-GLAXOSMITHKLINE-US2017GSK133602

PATIENT
  Sex: Female

DRUGS (3)
  1. VALACYCLOVIR [Suspect]
     Active Substance: VALACYCLOVIR HYDROCHLORIDE
     Indication: GENITAL HERPES
  2. L-LYSINE [Suspect]
     Active Substance: LYSINE
     Indication: GENITAL HERPES
  3. VALTREX [Suspect]
     Active Substance: VALACYCLOVIR HYDROCHLORIDE
     Indication: GENITAL HERPES

REACTIONS (8)
  - Weight increased [Unknown]
  - Haemorrhoids [Unknown]
  - Adverse reaction [Unknown]
  - Herpes virus infection [Unknown]
  - Drug ineffective [Unknown]
  - Pain [Unknown]
  - Drug administration error [Unknown]
  - Fluid retention [Unknown]
